FAERS Safety Report 7490610-X (Version None)
Quarter: 2011Q2

REPORT INFORMATION
  Report Type: 
  Country: None (occurrence: None)
  Receive Date: 20110519
  Receipt Date: 20110509
  Transmission Date: 20111010
  Serious: Yes (Death)
  Sender: FDA-Public Use
  Company Number: GR-BRISTOL-MYERS SQUIBB COMPANY-15728462

PATIENT
  Age: 50 Year
  Sex: Male

DRUGS (8)
  1. DOXORUBICIN HCL [Suspect]
     Indication: SPLENIC MARGINAL ZONE LYMPHOMA
  2. LAMIVUDINE [Suspect]
  3. CYCLOPHOSPHAMIDE [Suspect]
     Indication: SPLENIC MARGINAL ZONE LYMPHOMA
  4. VINCRISTINE [Suspect]
     Indication: SPLENIC MARGINAL ZONE LYMPHOMA
  5. PREDNISONE [Suspect]
     Indication: SPLENIC MARGINAL ZONE LYMPHOMA
  6. ENTECAVIR [Suspect]
  7. RITUXIMAB [Suspect]
     Indication: SPLENIC MARGINAL ZONE LYMPHOMA
  8. ADEFOVIR DIPIVOXIL KIT [Suspect]
     Dosage: 1 DF: 10 MG/DL

REACTIONS (4)
  - HEPATIC ENCEPHALOPATHY [None]
  - HEPATITIS B [None]
  - MULTI-ORGAN FAILURE [None]
  - HEPATIC FAILURE [None]
